FAERS Safety Report 8383381-6 (Version None)
Quarter: 2012Q2

REPORT INFORMATION
  Report Type: 
  Country: None (occurrence: None)
  Receive Date: 20120522
  Receipt Date: 20120508
  Transmission Date: 20120825
  Serious: Yes (Other)
  Sender: FDA-Public Use
  Company Number: KAD201204-000250

PATIENT
  Age: 56 Year
  Sex: Male
  Weight: 107 kg

DRUGS (3)
  1. RIBAVIRIN [Suspect]
     Indication: HEPATITIS C
     Dosage: 600 MG TWO TIMES A DAY, ORAL
     Route: 048
     Dates: start: 20111208
  2. PEG-INTRON [Suspect]
     Indication: HEPATITIS C
     Dosage: 150 MCG ONCE A WEEK, SUBCUTANEOUS
     Route: 058
     Dates: start: 20111208
  3. VICTRELIS [Suspect]
     Indication: HEPATITIS C
     Dosage: 800 MG THREE TIMES A DAY
     Dates: start: 20120107

REACTIONS (3)
  - INJECTION SITE RASH [None]
  - ERECTILE DYSFUNCTION [None]
  - ANORECTAL DISORDER [None]
